FAERS Safety Report 14155626 (Version 7)
Quarter: 2018Q1

REPORT INFORMATION
  Report Type: Spontaneous
  Country: JP (occurrence: JP)
  Receive Date: 20171103
  Receipt Date: 20180228
  Transmission Date: 20180508
  Serious: Yes (Hospitalization)
  Sender: FDA-Public Use
  Company Number: JP-009507513-1711JPN000876

PATIENT
  Age: 71 Year
  Sex: Female
  Weight: 45 kg

DRUGS (5)
  1. GLACTIV [Suspect]
     Active Substance: SITAGLIPTIN
     Indication: TYPE 2 DIABETES MELLITUS
     Dosage: 25 MG, ONCE A DAY
     Route: 048
     Dates: start: 201309, end: 20160418
  2. INSULIN ASPART [Concomitant]
     Active Substance: INSULIN ASPART
  3. NOVORAPID [Concomitant]
     Active Substance: INSULIN ASPART
     Dosage: 3 INJECTIONS A DAY
     Dates: start: 201309
  4. INSULIN ASPART [Concomitant]
     Active Substance: INSULIN ASPART
     Dosage: 3 INJECTIONS A DAY
  5. INSULIN ASPART [Concomitant]
     Active Substance: INSULIN ASPART

REACTIONS (2)
  - Hypoglycaemia [Recovered/Resolved]
  - Anti-insulin antibody increased [Unknown]

NARRATIVE: CASE EVENT DATE: 201410
